FAERS Safety Report 5007116-X (Version None)
Quarter: 2006Q2

REPORT INFORMATION
  Report Type: 
  Country: None (occurrence: None)
  Receive Date: 20060519
  Receipt Date: 20060201
  Transmission Date: 20061013
  Serious: Yes (Hospitalization)
  Sender: FDA-Public Use
  Company Number: CA-ABBOTT-06P-028-0324196-00

PATIENT
  Sex: Male
  Weight: 102 kg

DRUGS (13)
  1. HUMIRA [Suspect]
     Indication: RHEUMATOID ARTHRITIS
     Route: 058
     Dates: start: 20051102, end: 20051202
  2. CANDESARTAN CILEXETIL [Concomitant]
     Indication: NEPHROPATHY
  3. CANDESARTAN CILEXETIL [Concomitant]
  4. SULFASALAZINE [Concomitant]
     Indication: DRUG USE FOR UNKNOWN INDICATION
     Dosage: 2000MG/QD
  5. LEFLUNOMIDE [Concomitant]
     Indication: DRUG USE FOR UNKNOWN INDICATION
     Dates: start: 20040101
  6. HYDROXYCHLOROQUINE PHOSPHATE [Concomitant]
     Indication: DRUG USE FOR UNKNOWN INDICATION
  7. CELECOXIB [Concomitant]
     Indication: DRUG USE FOR UNKNOWN INDICATION
  8. SALMON OIL [Concomitant]
     Indication: DRUG USE FOR UNKNOWN INDICATION
  9. PARACETAMOL [Concomitant]
     Indication: DRUG USE FOR UNKNOWN INDICATION
  10. ADVIL ES [Concomitant]
     Indication: DRUG USE FOR UNKNOWN INDICATION
  11. PREDNISONE TAB [Concomitant]
     Indication: DRUG USE FOR UNKNOWN INDICATION
  12. WARFARIN SODIUM [Concomitant]
     Dosage: AS INDICATED BY PT-INR
  13. BETADINE CREAM [Concomitant]
     Indication: RASH

REACTIONS (17)
  - ABDOMINAL PAIN UPPER [None]
  - ANOREXIA [None]
  - ASCITES [None]
  - DIARRHOEA [None]
  - DIVERTICULUM [None]
  - HAEMORRHOIDS [None]
  - HYPERHIDROSIS [None]
  - INFLUENZA [None]
  - OCCULT BLOOD POSITIVE [None]
  - PORTAL VEIN THROMBOSIS [None]
  - RASH MACULAR [None]
  - SPLENOMEGALY [None]
  - STREPTOCOCCAL SEPSIS [None]
  - UPPER RESPIRATORY TRACT INFECTION [None]
  - VENTRICULAR HYPERTROPHY [None]
  - VOMITING [None]
  - WEIGHT DECREASED [None]
